FAERS Safety Report 12888703 (Version 1)
Quarter: 2016Q4

REPORT INFORMATION
  Report Type: Report from Study
  Country: BR (occurrence: BR)
  Receive Date: 20161027
  Receipt Date: 20161027
  Transmission Date: 20170207
  Serious: Yes (Hospitalization, Other)
  Sender: FDA-Public Use
  Company Number: PHHY2015BR165913

PATIENT
  Age: 42 Year
  Sex: Female
  Weight: 40 kg

DRUGS (2)
  1. GILENYA [Suspect]
     Active Substance: FINGOLIMOD HYDROCHLORIDE
     Indication: MULTIPLE SCLEROSIS
     Dosage: 0.5 MG, QD
     Route: 048
     Dates: start: 20151026
  2. VITAMIN D [Concomitant]
     Active Substance: CHOLECALCIFEROL
     Indication: PRODUCT USED FOR UNKNOWN INDICATION
     Dosage: 5000 U, QD
     Route: 048
     Dates: start: 201610

REACTIONS (11)
  - Renal pain [Recovering/Resolving]
  - Musculoskeletal pain [Recovering/Resolving]
  - Influenza [Recovered/Resolved]
  - Tooth fracture [Not Recovered/Not Resolved]
  - Pain in extremity [Recovering/Resolving]
  - Sensory loss [Recovering/Resolving]
  - Pyelonephritis [Recovering/Resolving]
  - Hypersensitivity [Recovered/Resolved]
  - Multiple sclerosis relapse [Recovering/Resolving]
  - Muscular weakness [Recovered/Resolved]
  - Peripheral swelling [Recovering/Resolving]

NARRATIVE: CASE EVENT DATE: 201512
